FAERS Safety Report 12757286 (Version 1)
Quarter: 2016Q3

REPORT INFORMATION
  Report Type: Spontaneous
  Country: US (occurrence: US)
  Receive Date: 20160919
  Receipt Date: 20160919
  Transmission Date: 20161109
  Serious: No
  Sender: FDA-Public Use
  Company Number: US-JNJFOC-20160910513

PATIENT

DRUGS (2)
  1. ZYRTEC [Suspect]
     Active Substance: CETIRIZINE HYDROCHLORIDE
     Indication: MULTIPLE ALLERGIES
     Dosage: TWO YEARS AGO; DAILY
     Route: 065
  2. ZYRTEC [Suspect]
     Active Substance: CETIRIZINE HYDROCHLORIDE
     Indication: ALLERGY TO ANIMAL
     Dosage: TWO YEARS AGO; DAILY
     Route: 065

REACTIONS (4)
  - Withdrawal syndrome [Unknown]
  - Therapeutic response unexpected [Unknown]
  - Product use issue [Unknown]
  - Pruritus generalised [Unknown]
